FAERS Safety Report 6143197-8 (Version None)
Quarter: 2009Q2

REPORT INFORMATION
  Report Type: 
  Country: None (occurrence: None)
  Receive Date: 20090403
  Receipt Date: 20040713
  Transmission Date: 20091009
  Serious: Yes (Hospitalization)
  Sender: FDA-Public Use
  Company Number: DE-ROCHE-356351

PATIENT
  Sex: Male

DRUGS (71)
  1. MYCOPHENOLATE MOFETIL [Suspect]
     Route: 048
     Dates: start: 20040114, end: 20040118
  2. MYCOPHENOLATE MOFETIL [Suspect]
     Route: 048
     Dates: start: 20040123
  3. MYCOPHENOLATE MOFETIL [Suspect]
     Route: 048
     Dates: start: 20040124
  4. MYCOPHENOLATE MOFETIL [Suspect]
     Route: 048
     Dates: start: 20040201, end: 20050215
  5. MYCOPHENOLATE MOFETIL [Suspect]
     Route: 048
     Dates: start: 20050226, end: 20050303
  6. MYCOPHENOLATE MOFETIL [Suspect]
     Route: 048
     Dates: start: 20050407
  7. MYCOPHENOLATE MOFETIL [Suspect]
     Route: 048
     Dates: start: 20050714
  8. CYCLOSPORINE [Suspect]
     Route: 048
     Dates: start: 20040114
  9. CYCLOSPORINE [Suspect]
     Route: 048
     Dates: start: 20040116
  10. CYCLOSPORINE [Suspect]
     Route: 048
     Dates: start: 20040118
  11. CYCLOSPORINE [Suspect]
     Route: 048
     Dates: start: 20040120
  12. CYCLOSPORINE [Suspect]
     Route: 048
     Dates: start: 20040121
  13. CYCLOSPORINE [Suspect]
     Route: 048
     Dates: start: 20040122
  14. CYCLOSPORINE [Suspect]
     Route: 048
     Dates: start: 20040123
  15. CYCLOSPORINE [Suspect]
     Route: 048
     Dates: start: 20040124
  16. CYCLOSPORINE [Suspect]
     Route: 048
     Dates: start: 20040125
  17. CYCLOSPORINE [Suspect]
     Route: 048
     Dates: start: 20040126
  18. CYCLOSPORINE [Suspect]
     Route: 048
     Dates: start: 20040127
  19. CYCLOSPORINE [Suspect]
     Route: 048
     Dates: start: 20040128
  20. CYCLOSPORINE [Suspect]
     Route: 048
     Dates: start: 20040129
  21. CYCLOSPORINE [Suspect]
     Route: 048
     Dates: start: 20040130
  22. CYCLOSPORINE [Suspect]
     Route: 048
     Dates: start: 20040131
  23. CYCLOSPORINE [Suspect]
     Route: 048
     Dates: start: 20040201
  24. CYCLOSPORINE [Suspect]
     Route: 048
     Dates: start: 20040202
  25. CYCLOSPORINE [Suspect]
     Route: 048
     Dates: start: 20040203
  26. CYCLOSPORINE [Suspect]
     Route: 048
     Dates: start: 20040204
  27. CYCLOSPORINE [Suspect]
     Route: 048
     Dates: start: 20040210
  28. CYCLOSPORINE [Suspect]
     Route: 048
     Dates: start: 20040220
  29. CYCLOSPORINE [Suspect]
     Route: 048
     Dates: start: 20040301
  30. CYCLOSPORINE [Suspect]
     Route: 048
     Dates: start: 20040310
  31. CYCLOSPORINE [Suspect]
     Route: 048
     Dates: start: 20040311
  32. CYCLOSPORINE [Suspect]
     Route: 048
     Dates: start: 20040519
  33. CYCLOSPORINE [Suspect]
     Route: 048
     Dates: start: 20040713
  34. CYCLOSPORINE [Suspect]
     Route: 048
     Dates: start: 20040714
  35. CYCLOSPORINE [Suspect]
     Route: 048
     Dates: start: 20050215, end: 20050216
  36. CYCLOSPORINE [Suspect]
     Route: 048
     Dates: start: 20050221, end: 20050308
  37. PREDNISOLONE [Suspect]
     Route: 048
     Dates: start: 20040116
  38. PREDNISOLONE [Suspect]
     Route: 048
     Dates: start: 20040129
  39. PREDNISOLONE [Suspect]
     Route: 048
     Dates: start: 20040220
  40. PREDNISOLONE [Suspect]
     Route: 048
     Dates: start: 20040312, end: 20050217
  41. PREDNISOLONE [Suspect]
     Route: 048
     Dates: start: 20050224
  42. PREDNISOLONE [Suspect]
     Route: 048
     Dates: start: 20050714
  43. PREDNISOLONE HEMISUCCINATE [Suspect]
     Route: 065
     Dates: start: 20040114
  44. PREDNISOLONE HEMISUCCINATE [Suspect]
     Route: 065
     Dates: start: 20040115, end: 20040116
  45. PREDNISOLONE HEMISUCCINATE [Suspect]
     Route: 065
     Dates: start: 20050303, end: 20050304
  46. CIPROBAY [Suspect]
     Route: 048
     Dates: start: 20040310, end: 20040311
  47. AMPHOTERICIN B [Concomitant]
     Route: 048
     Dates: start: 20040114, end: 20040317
  48. AMPHOTERICIN B [Concomitant]
     Route: 048
     Dates: start: 20050303
  49. CYMEVEN [Concomitant]
     Route: 042
     Dates: start: 20040114, end: 20040118
  50. SORTIS [Concomitant]
     Route: 048
     Dates: start: 20040114
  51. SORTIS [Concomitant]
     Route: 048
     Dates: start: 20050301
  52. EBRANTIL [Concomitant]
     Dates: start: 20040114, end: 20040115
  53. ROCEPHIN [Concomitant]
     Route: 042
     Dates: start: 20040114, end: 20040116
  54. ROCEPHIN [Concomitant]
     Route: 042
     Dates: start: 20040117, end: 20040129
  55. ROCEPHIN [Concomitant]
     Route: 042
     Dates: start: 20050215, end: 20050216
  56. ROCEPHIN [Concomitant]
     Route: 042
     Dates: start: 20050216, end: 20050219
  57. COTRIM [Concomitant]
     Dates: start: 20040116, end: 20040311
  58. COTRIM [Concomitant]
     Dates: start: 20050303
  59. VALCYTE [Concomitant]
     Indication: DRUG USE FOR UNKNOWN INDICATION
     Route: 048
     Dates: start: 20040118, end: 20040414
  60. VALCYTE [Concomitant]
     Route: 048
     Dates: start: 20050301
  61. ERYTHROMYCIN [Concomitant]
     Route: 042
     Dates: start: 20040119, end: 20040122
  62. BELOC ZOK MITE [Concomitant]
     Route: 048
     Dates: start: 20040225, end: 20040313
  63. HYDROCORTISON [Suspect]
     Route: 042
     Dates: start: 20050216, end: 20050224
  64. METRONIDAZOLE HCL [Concomitant]
     Route: 048
     Dates: start: 20050215, end: 20050216
  65. METRONIDAZOLE HCL [Concomitant]
     Route: 048
     Dates: start: 20050216, end: 20050221
  66. CYCLOPHOSPHAMIDE [Concomitant]
     Route: 042
     Dates: start: 20050303, end: 20050304
  67. IMIPENEM [Concomitant]
     Route: 042
     Dates: start: 20050218, end: 20050219
  68. IMIPENEM [Concomitant]
     Route: 042
     Dates: start: 20050219, end: 20050303
  69. NORFLOXACIN [Concomitant]
     Route: 048
     Dates: start: 20050411
  70. NORVASC [Concomitant]
     Route: 048
     Dates: start: 20040123, end: 20040130
  71. NORVASC [Concomitant]
     Route: 048
     Dates: start: 20040131

REACTIONS (7)
  - DEHYDRATION [None]
  - GLOMERULONEPHRITIS RAPIDLY PROGRESSIVE [None]
  - PLEURAL EFFUSION [None]
  - PNEUMONIA [None]
  - RENAL VASCULITIS [None]
  - SEPSIS [None]
  - THERAPEUTIC AGENT TOXICITY [None]
